FAERS Safety Report 8831492 (Version 2)
Quarter: 2012Q4

REPORT INFORMATION
  Report Type: 
  Country: US (occurrence: US)
  Receive Date: 20121008
  Receipt Date: 20121024
  Transmission Date: 20130627
  Serious: Yes (Death)
  Sender: FDA-Public Use
  Company Number: US-GLAXOSMITHKLINE-A0996519A

PATIENT
  Age: 86 Year
  Sex: Male

DRUGS (1)
  1. COREG [Suspect]
     Indication: PRODUCT USED FOR UNKNOWN INDICATION
     Dosage: 3.125MG Unknown
     Route: 065
     Dates: start: 20110504

REACTIONS (1)
  - Post procedural complication [Fatal]
